FAERS Safety Report 8053917-3 (Version None)
Quarter: 2012Q1

REPORT INFORMATION
  Report Type: 
  Country: None (occurrence: None)
  Receive Date: 20120118
  Receipt Date: 20120105
  Transmission Date: 20120608
  Serious: No
  Sender: FDA-Public Use
  Company Number: BR-ELI_LILLY_AND_COMPANY-BR201201001592

PATIENT
  Age: 57 Year
  Sex: Male

DRUGS (1)
  1. CIALIS [Suspect]
     Dosage: 20 MG, SINGLE
     Route: 065
     Dates: start: 20111230, end: 20111230

REACTIONS (5)
  - BACK PAIN [None]
  - EJACULATION FAILURE [None]
  - ERYTHEMA [None]
  - VISION BLURRED [None]
  - HEADACHE [None]
